FAERS Safety Report 4751170-7 (Version None)
Quarter: 2005Q3

REPORT INFORMATION
  Report Type: 
  Country: None (occurrence: None)
  Receive Date: 20050822
  Receipt Date: 20050822
  Transmission Date: 20060218
  Serious: Yes (Other)
  Sender: FDA-Public Use
  Company Number: None

PATIENT
  Age: 6 Month
  Sex: Female
  Weight: 8 kg

DRUGS (2)
  1. PREDNISOLONE [Suspect]
     Indication: HAEMANGIOMA
     Dosage: 7 ML   QOD    P.O.
     Route: 048
     Dates: start: 20050401
  2. ZANTAC [Concomitant]

REACTIONS (2)
  - CHOKING [None]
  - VOMITING [None]
